FAERS Safety Report 9723275 (Version 1)
Quarter: 2013Q4

REPORT INFORMATION
  Report Type: Spontaneous
  Country: BR (occurrence: BR)
  Receive Date: 20131202
  Receipt Date: 20131202
  Transmission Date: 20140711
  Serious: Yes (Hospitalization, Other)
  Sender: FDA-Public Use
  Company Number: BR-ABBVIE-13P-020-1174530-00

PATIENT
  Age: 70 Year
  Sex: Male
  Weight: 81.5 kg

DRUGS (5)
  1. SYNTHROID [Suspect]
     Indication: HORMONE REPLACEMENT THERAPY
     Dosage: IN THE MORNING, FASTING
     Route: 048
     Dates: start: 199707, end: 20131118
  2. SYNTHROID [Suspect]
     Indication: THYROIDECTOMY
  3. ACTOS [Concomitant]
     Indication: TYPE 2 DIABETES MELLITUS
  4. UNKNOWN MEDICATION [Concomitant]
     Indication: HORMONE REPLACEMENT THERAPY
     Dates: start: 201311
  5. UNKNOWN MEDICATION [Concomitant]
     Indication: THYROIDECTOMY

REACTIONS (4)
  - Syncope [Recovered/Resolved]
  - Cerebrovascular accident [Recovered/Resolved]
  - Syncope [Unknown]
  - Dizziness [Not Recovered/Not Resolved]
